FAERS Safety Report 4410928-4 (Version None)
Quarter: 2004Q3

REPORT INFORMATION
  Report Type: 
  Country: None (occurrence: None)
  Receive Date: 20040728
  Receipt Date: 20040728
  Transmission Date: 20050211
  Serious: Yes (Life-Threatening, Hospitalization)
  Sender: FDA-Public Use
  Company Number: None

PATIENT
  Age: 58 Year
  Sex: Male
  Weight: 98.6 kg

DRUGS (29)
  1. WARFARIN SODIUM [Suspect]
     Indication: CORONARY ARTERY SURGERY
     Dosage: ORAL
     Route: 048
     Dates: end: 20040223
  2. WARFARIN SODIUM [Suspect]
     Indication: DEEP VEIN THROMBOSIS
     Dosage: ORAL
     Route: 048
     Dates: end: 20040223
  3. ASPIRIN [Suspect]
  4. CLOPIDOGREL [Suspect]
  5. FUROSEMIDE [Concomitant]
  6. COLESTIPOL HCL [Concomitant]
  7. COUMADIN [Concomitant]
  8. CLOPIDOGREL BISULFATE [Concomitant]
  9. HUMULIN N [Concomitant]
  10. ISOSORBIDE MONONITRATE [Concomitant]
  11. METOPROLOL TARTRATE [Concomitant]
  12. SIMVASTATIN [Concomitant]
  13. PROPOXYPHENE N [Concomitant]
  14. AMLODIPINE BESYLATE [Concomitant]
  15. ASPIRIN [Concomitant]
  16. HYDRALAZINE [Concomitant]
  17. PROPOXYPHENE [Concomitant]
  18. IPATROPIUM BROMIDE [Concomitant]
  19. ALBUTEROL [Concomitant]
  20. FUROSEMIDE [Concomitant]
  21. WARFARIN SODIUM [Concomitant]
  22. SODIUM POLYSTYRINE [Concomitant]
  23. AZITHROMYCIN [Concomitant]
  24. DOCUSATE NA [Concomitant]
  25. LACTULOSE [Concomitant]
  26. LOSARTAN POTASSIUM [Concomitant]
  27. CLOPIDOGREL BISULFATE [Concomitant]
  28. COLESTIPOL HCL [Concomitant]
  29. ALPRAZOLAM [Concomitant]

REACTIONS (1)
  - ANAEMIA [None]
